FAERS Safety Report 8025109 (Version 2)
Quarter: 2014Q1

REPORT INFORMATION
  Report Type: Spontaneous
  Country: US (occurrence: US)
  Receive Date: 20110707
  Receipt Date: 20140221
  Transmission Date: 20141002
  Serious: Yes (Hospitalization)
  Sender: FDA-Public Use
  Company Number: US-GLAXOSMITHKLINE-A0801982A

PATIENT
  Sex: Female
  Weight: 54.5 kg

DRUGS (2)
  1. AVANDIA [Suspect]
     Indication: TYPE 2 DIABETES MELLITUS
     Route: 048
     Dates: end: 2007
  2. AVANDAMET [Suspect]
     Indication: DIABETES MELLITUS
     Route: 048

REACTIONS (8)
  - Cerebrovascular accident [Not Recovered/Not Resolved]
  - Cataract [Unknown]
  - VIIth nerve paralysis [Unknown]
  - Angina unstable [Unknown]
  - Angina pectoris [Unknown]
  - Muscular weakness [Unknown]
  - Visual impairment [Unknown]
  - Condition aggravated [Unknown]
